FAERS Safety Report 10525545 (Version 2)
Quarter: 2015Q1

REPORT INFORMATION
  Report Type: Spontaneous
  Country: FR (occurrence: None)
  Receive Date: 20141015
  Receipt Date: 20150220
  Transmission Date: 20150720
  Serious: Yes (Other)
  Sender: FDA-Public Use
  Company Number: 2014FR008776

PATIENT
  Age: 77 Year
  Sex: Male
  Weight: 75 kg

DRUGS (2)
  1. ELIGARD [Suspect]
     Active Substance: LEUPROLIDE ACETATE
     Indication: PROSTATE CANCER
  2. CASODEX [Suspect]
     Active Substance: BICALUTAMIDE
     Indication: PROSTATE CANCER
     Route: 048
     Dates: start: 20140128, end: 201407

REACTIONS (9)
  - Gait disturbance [None]
  - Osteoporosis [None]
  - Hot flush [None]
  - Osteoarthritis [None]
  - Spinal osteoarthritis [None]
  - Irritability [None]
  - Asthenia [None]
  - Breast swelling [None]
  - Lower limb fracture [None]
